FAERS Safety Report 17988576 (Version 1)
Quarter: 2020Q3

REPORT INFORMATION
  Report Type: Spontaneous
  Country: US (occurrence: US)
  Receive Date: 20200706
  Receipt Date: 20200706
  Transmission Date: 20201103
  Serious: Yes (Other)
  Sender: FDA-Public Use
  Company Number: None

PATIENT
  Age: 67 Year
  Sex: Female
  Weight: 101.25 kg

DRUGS (16)
  1. AMBIEN [Concomitant]
     Active Substance: ZOLPIDEM TARTRATE
  2. PROTONIX 20 MG [Concomitant]
  3. ALEVE [Concomitant]
     Active Substance: NAPROXEN SODIUM
  4. ZOCOR [Concomitant]
     Active Substance: SIMVASTATIN
  5. METFORMIN [Concomitant]
     Active Substance: METFORMIN HYDROCHLORIDE
  6. SR MULTI [Concomitant]
  7. TUMS 750 MG [Concomitant]
  8. VITAMIN D [Concomitant]
     Active Substance: VITAMIN D NOS
  9. CPAP [Concomitant]
     Active Substance: DEVICE
  10. COZAR 50 MG [Concomitant]
  11. BIOTIN [Concomitant]
     Active Substance: BIOTIN
  12. VITAMIN A [Concomitant]
     Active Substance: VITAMIN A
  13. OZEMPIC [Suspect]
     Active Substance: SEMAGLUTIDE
     Indication: DIABETES MELLITUS
     Dosage: ?          QUANTITY:1 INJECTION(S);OTHER FREQUENCY:ONE SHOT A WEEK;?
     Route: 058
     Dates: start: 20200618, end: 20200625
  14. GLIPIZIDE 10 MG [Concomitant]
     Active Substance: GLIPIZIDE
  15. ONE?A?DAY NOS [Concomitant]
     Active Substance: MINERALS\VITAMINS
  16. MAGNESIUM [Concomitant]
     Active Substance: MAGNESIUM

REACTIONS (8)
  - Malaise [None]
  - Nausea [None]
  - Diarrhoea [None]
  - Flatulence [None]
  - Hypophagia [None]
  - Toxicity to various agents [None]
  - Abdominal pain upper [None]
  - Fatigue [None]

NARRATIVE: CASE EVENT DATE: 20200625
